FAERS Safety Report 16310621 (Version 1)
Quarter: 2019Q2

REPORT INFORMATION
  Report Type: Spontaneous
  Country: DE (occurrence: DE)
  Receive Date: 20190514
  Receipt Date: 20190514
  Transmission Date: 20190711
  Serious: Yes (Hospitalization, Other)
  Sender: FDA-Public Use
  Company Number: DE-BAUSCH-BL-2019-013756

PATIENT
  Sex: Female
  Weight: 65 kg

DRUGS (6)
  1. PREDNISOLONE. [Suspect]
     Active Substance: PREDNISOLONE
     Indication: COLITIS ULCERATIVE
     Dosage: LONG-TERM THERAPY
     Route: 048
     Dates: start: 201809
  2. PREDNISOLONE. [Interacting]
     Active Substance: PREDNISOLONE
     Dosage: PULSE THERAPY JUST BEFORE THE EVENT
     Route: 048
  3. HUMIRA [Suspect]
     Active Substance: ADALIMUMAB
     Indication: PRODUCT USED FOR UNKNOWN INDICATION
     Route: 065
  4. SALOFALK (MESALAZINE) [Suspect]
     Active Substance: MESALAMINE
     Indication: PRODUCT USED FOR UNKNOWN INDICATION
     Route: 065
     Dates: start: 201811
  5. VELAFEE [Interacting]
     Active Substance: DIENOGEST\ETHINYL ESTRADIOL
     Indication: PRODUCT USED FOR UNKNOWN INDICATION
     Dosage: 21X DNG 2000 MCG/EE 30 MCG
     Route: 065
     Dates: start: 201405, end: 201903
  6. PREDNISOLONE. [Interacting]
     Active Substance: PREDNISOLONE
     Indication: COLITIS ULCERATIVE
     Dosage: PULSE THERAPY JUST BEFORE THE EVENT
     Route: 042

REACTIONS (3)
  - Pulmonary embolism [Unknown]
  - Drug ineffective [Unknown]
  - Drug interaction [Unknown]

NARRATIVE: CASE EVENT DATE: 20190304
